FAERS Safety Report 24075632 (Version 1)
Quarter: 2024Q3

REPORT INFORMATION
  Report Type: Spontaneous
  Country: US (occurrence: US)
  Receive Date: 20240710
  Receipt Date: 20240710
  Transmission Date: 20241017
  Serious: No
  Sender: SANDOZ
  Company Number: US-SANDOZ-SDZ2024US064009

PATIENT
  Sex: Female

DRUGS (1)
  1. TAFLUPROST [Suspect]
     Active Substance: TAFLUPROST
     Indication: Product used for unknown indication
     Dosage: 1 DROP, QD AT NIGHT
     Route: 065
     Dates: start: 20240201

REACTIONS (3)
  - Swelling face [Unknown]
  - Swelling of eyelid [Unknown]
  - Lip swelling [Unknown]
